FAERS Safety Report 7768504-1 (Version None)
Quarter: 2011Q3

REPORT INFORMATION
  Report Type: 
  Country: None (occurrence: None)
  Receive Date: 20110922
  Receipt Date: 20100721
  Transmission Date: 20111222
  Serious: No
  Sender: FDA-Public Use
  Company Number: US-ASTRAZENECA-2010SE33998

PATIENT
  Age: 12757 Day
  Sex: Female
  Weight: 83.9 kg

DRUGS (4)
  1. SEROQUEL [Suspect]
     Indication: BIPOLAR DISORDER
     Route: 048
     Dates: start: 20050101, end: 20100718
  2. DEPAKOTE ER [Concomitant]
  3. KLONOPIN [Concomitant]
  4. CEBOXONE [Concomitant]

REACTIONS (3)
  - FEELING OF BODY TEMPERATURE CHANGE [None]
  - MOOD SWINGS [None]
  - DRUG DOSE OMISSION [None]
